FAERS Safety Report 5496221-X (Version None)
Quarter: 2007Q3

REPORT INFORMATION
  Report Type: 
  Country: None (occurrence: None)
  Receive Date: 20070911
  Receipt Date: 20070911
  Transmission Date: 20080115
  Serious: Yes (Other)
  Sender: FDA-Public Use
  Company Number: None

PATIENT
  Age: 51 Year
  Sex: Female
  Weight: 95.2554 kg

DRUGS (1)
  1. LOVENOX [Suspect]
     Dosage: 1 SYRINGE DAILY X 14 DAYS SQ
     Route: 058

REACTIONS (1)
  - INTERCEPTED MEDICATION ERROR [None]
